FAERS Safety Report 7559653-1 (Version None)
Quarter: 2011Q2

REPORT INFORMATION
  Report Type: 
  Country: None (occurrence: None)
  Receive Date: 20110621
  Receipt Date: 20110607
  Transmission Date: 20111010
  Serious: Yes (Other)
  Sender: FDA-Public Use
  Company Number: US-ROCHE-729659

PATIENT
  Sex: Male
  Weight: 125.1 kg

DRUGS (9)
  1. NEULASTA [Concomitant]
  2. LOVENOX [Concomitant]
  3. AMOXICILLIN [Concomitant]
  4. DEXAMETHASONE [Concomitant]
  5. LENALIDOMIDE [Suspect]
     Indication: PROSTATE CANCER
     Dosage: DAYS 1-14, CYCLE: 21 DAYS, LAST DOSE: 22 AUG 2010 (CYCLE 2, DAY 14)
     Route: 048
     Dates: start: 20100721
  6. PREDNISONE [Suspect]
     Indication: PROSTATE CANCER
     Dosage: LAST DOSE: 30 AUG 2010 (CYCLE 2, DAY 22)
     Route: 048
     Dates: start: 20100721
  7. BEVACIZUMAB [Suspect]
     Indication: PROSTATE CANCER
     Dosage: OVER 30-90 MINUTES ON DAY 1, CYCLE: 21 DAYS, LAST DOSE:09 AUG 2010 (CYCLE 2, DAY 1)
     Route: 042
     Dates: start: 20100721
  8. DECADRON [Concomitant]
  9. DOCETAXEL [Suspect]
     Indication: PROSTATE CANCER
     Dosage: OVER 60 MINUTES ON DAY 1, LAST DOSE: 09 AUG 2010 (CYCLE 2, DAY 1)
     Route: 042
     Dates: start: 20100721

REACTIONS (1)
  - OSTEONECROSIS OF JAW [None]
